FAERS Safety Report 11743930 (Version 1)
Quarter: 2015Q4

REPORT INFORMATION
  Report Type: Spontaneous
  Country: IT (occurrence: IT)
  Receive Date: 20151116
  Receipt Date: 20151116
  Transmission Date: 20160304
  Serious: Yes (Other)
  Sender: FDA-Public Use
  Company Number: IT-PFIZER INC-2015384188

PATIENT
  Age: 8 Year
  Sex: Male

DRUGS (4)
  1. SIROLIMUS. [Suspect]
     Active Substance: SIROLIMUS
     Dosage: 7 MG, DAILY
  2. SIROLIMUS. [Suspect]
     Active Substance: SIROLIMUS
     Indication: HYPERINSULINISM
     Dosage: 0.5 MG, DAILY
  3. SIROLIMUS. [Suspect]
     Active Substance: SIROLIMUS
     Dosage: 1 UNK, UNK
  4. DIAZOXIDE [Concomitant]
     Active Substance: DIAZOXIDE
     Indication: HYPERINSULINISM
     Dosage: UNK

REACTIONS (4)
  - Haematemesis [Recovering/Resolving]
  - Acne [Unknown]
  - Mouth ulceration [Unknown]
  - Product use issue [Unknown]
